FAERS Safety Report 5607487-7 (Version None)
Quarter: 2008Q1

REPORT INFORMATION
  Report Type: 
  Country: None (occurrence: None)
  Receive Date: 20080125
  Receipt Date: 20080118
  Transmission Date: 20080703
  Serious: Yes (Hospitalization)
  Sender: FDA-Public Use
  Company Number: 056-21880-07120210

PATIENT
  Age: 63 Year
  Sex: Female

DRUGS (8)
  1. REVLIMID [Suspect]
     Indication: LIGHT CHAIN DISEASE
     Dosage: 25 MG, DAILY, ORAL, 15 MG, DAILY, ORAL
     Route: 048
     Dates: start: 20071116
  2. DECTANCYL (DEXAMETHASONE ACETATE) [Concomitant]
  3. ALPRAZOLAM [Concomitant]
  4. PREVISCAN (FLUINDIONE) [Concomitant]
  5. ALDACTONE [Concomitant]
  6. PERINDOPRIL ERBUMINE [Concomitant]
  7. LASIX [Concomitant]
  8. DEXAMETHASONE TAB [Concomitant]

REACTIONS (27)
  - ARTHRALGIA [None]
  - CARDIAC FAILURE [None]
  - DIZZINESS [None]
  - ESCHERICHIA URINARY TRACT INFECTION [None]
  - FUNGAL INFECTION [None]
  - HAEMATURIA [None]
  - HAEMOGLOBIN DECREASED [None]
  - HYPONATRAEMIA [None]
  - HYPOTENSION [None]
  - HYPOVOLAEMIA [None]
  - INFLAMMATION [None]
  - INTERNATIONAL NORMALISED RATIO INCREASED [None]
  - LOSS OF CONSCIOUSNESS [None]
  - MALAISE [None]
  - MYALGIA [None]
  - OEDEMA PERIPHERAL [None]
  - OVERDOSE [None]
  - PLATELET COUNT DECREASED [None]
  - PLEURAL EFFUSION [None]
  - PROTHROMBIN TIME PROLONGED [None]
  - PULMONARY ARTERIAL PRESSURE INCREASED [None]
  - RASH [None]
  - RENAL CYST [None]
  - RENAL FAILURE [None]
  - SUPERINFECTION [None]
  - TONGUE ULCERATION [None]
  - URINARY TRACT INFECTION [None]
